FAERS Safety Report 4316701-X (Version None)
Quarter: 2004Q1

REPORT INFORMATION
  Report Type: 
  Country: None (occurrence: None)
  Receive Date: 20040311
  Receipt Date: 20040226
  Transmission Date: 20041129
  Serious: Yes (Hospitalization)
  Sender: FDA-Public Use
  Company Number: EEES00204000534

PATIENT
  Age: 56 Year
  Sex: Female
  Weight: 67.1324 kg

DRUGS (1)
  1. ESTRATAB [Suspect]
     Indication: HORMONE REPLACEMENT THERAPY
     Dosage: 1 DF QD PO
     Route: 048
     Dates: start: 19920101, end: 20010101

REACTIONS (6)
  - BREAST CANCER [None]
  - IMPLANT SITE REACTION [None]
  - INCISIONAL DRAINAGE [None]
  - LUNG NEOPLASM MALIGNANT [None]
  - URINARY INCONTINENCE [None]
  - WOUND DEHISCENCE [None]
